FAERS Safety Report 8594853-3 (Version None)
Quarter: 2012Q3

REPORT INFORMATION
  Report Type: 
  Country: None (occurrence: None)
  Receive Date: 20120815
  Receipt Date: 20120808
  Transmission Date: 20120928
  Serious: Yes (Other)
  Sender: FDA-Public Use
  Company Number: US-JNJFOC-20120804781

PATIENT
  Age: 66 Year
  Sex: Female

DRUGS (5)
  1. XARELTO [Suspect]
     Indication: ORTHOPEDIC PROCEDURE
     Route: 048
  2. XARELTO [Suspect]
     Indication: THROMBOSIS PROPHYLAXIS
     Route: 048
  3. LISINOPRIL [Concomitant]
  4. ASPIRIN [Suspect]
     Indication: PRODUCT USED FOR UNKNOWN INDICATION
  5. CELEBREX [Concomitant]

REACTIONS (1)
  - PLATELET COUNT DECREASED [None]
